FAERS Safety Report 6738788-7 (Version None)
Quarter: 2010Q2

REPORT INFORMATION
  Report Type: 
  Country: None (occurrence: None)
  Receive Date: 20100524
  Receipt Date: 20100514
  Transmission Date: 20101027
  Serious: Yes (Death, Life-Threatening, Hospitalization, Other)
  Sender: FDA-Public Use
  Company Number: HQWYE121210OCT03

PATIENT
  Sex: Female

DRUGS (2)
  1. PREMPRO [Suspect]
     Indication: HORMONE REPLACEMENT THERAPY
     Dosage: UNSPECIFIED DAILY DOSAGE
     Route: 048
  2. CONJUGATED ESTROGENS [Suspect]

REACTIONS (2)
  - BREAST CANCER FEMALE [None]
  - OVARIAN CANCER METASTATIC [None]
